FAERS Safety Report 9685828 (Version 2)
Quarter: 2013Q4

REPORT INFORMATION
  Report Type: Spontaneous
  Country: US (occurrence: US)
  Receive Date: 20131113
  Receipt Date: 20131226
  Transmission Date: 20140711
  Serious: No
  Sender: FDA-Public Use
  Company Number: US-PFIZER INC-2013323105

PATIENT
  Age: 40 Year
  Sex: Female

DRUGS (6)
  1. LYRICA [Suspect]
     Dosage: UNK
     Route: 048
  2. ZOLPIDEM TARTRATE [Suspect]
     Dosage: 10 MG, 1X/DAY
     Route: 048
     Dates: start: 20130115, end: 20130130
  3. VALIUM [Suspect]
     Dosage: UNK
     Route: 048
     Dates: end: 20110812
  4. BENADRYL [Suspect]
     Dosage: UNK
     Route: 048
  5. DARVOCET [Suspect]
     Dosage: UNK
     Route: 048
  6. CODEINE [Suspect]
     Dosage: UNK

REACTIONS (8)
  - Drug hypersensitivity [Unknown]
  - Muscle spasms [Recovered/Resolved]
  - Fibromyalgia [Recovered/Resolved]
  - Insomnia [Recovered/Resolved]
  - Dysarthria [Recovered/Resolved]
  - Feeling drunk [Recovered/Resolved]
  - Vision blurred [Recovered/Resolved]
  - Nightmare [Recovered/Resolved]
